FAERS Safety Report 5679816-X (Version None)
Quarter: 2008Q1

REPORT INFORMATION
  Report Type: 
  Country: None (occurrence: None)
  Receive Date: 20080321
  Receipt Date: 20080305
  Transmission Date: 20080703
  Serious: Yes (Other)
  Sender: FDA-Public Use
  Company Number: 2002001157-FJ

PATIENT
  Age: 13 Year
  Sex: Male
  Weight: 77.5 kg

DRUGS (1)
  1. PROGRAF [Suspect]
     Indication: BONE MARROW TRANSPLANT
     Dosage: 15 UG/KG, IV NOS
     Route: 042
     Dates: start: 20000726, end: 20000825

REACTIONS (6)
  - CYTOMEGALOVIRUS INFECTION [None]
  - HYPERGLYCAEMIA [None]
  - NEPHROTIC SYNDROME [None]
  - STAPHYLOCOCCAL INFECTION [None]
  - THROMBOTIC MICROANGIOPATHY [None]
  - VENOOCCLUSIVE LIVER DISEASE [None]
